FAERS Safety Report 9645577 (Version 2)
Quarter: 2013Q4

REPORT INFORMATION
  Report Type: Spontaneous
  Country: JP (occurrence: JP)
  Receive Date: 20131025
  Receipt Date: 20131121
  Transmission Date: 20140711
  Serious: Yes (Hospitalization, Other)
  Sender: FDA-Public Use
  Company Number: JP-ASTRAZENECA-2013SE77184

PATIENT
  Age: 45 Year
  Sex: Male
  Weight: 97 kg

DRUGS (5)
  1. FENTANYL [Suspect]
     Indication: INDUCTION OF ANAESTHESIA
     Route: 065
  2. PROPOFOL (NON AZ PRODUCT) [Suspect]
     Indication: INDUCTION OF ANAESTHESIA
     Route: 042
  3. ROCURONIUM BROMIDE [Suspect]
     Indication: INDUCTION OF ANAESTHESIA
     Route: 065
  4. SEVOFLURANE [Suspect]
     Indication: MAINTENANCE OF ANAESTHESIA
     Dosage: 2 - 2.5%
     Route: 065
  5. OXYGEN [Concomitant]
     Dosage: 1 L/MIN
     Route: 065

REACTIONS (1)
  - Pulmonary embolism [Recovered/Resolved]
